FAERS Safety Report 4612160-8 (Version None)
Quarter: 2005Q2

REPORT INFORMATION
  Report Type: 
  Country: None (occurrence: None)
  Receive Date: 20050308
  Receipt Date: 20041124
  Transmission Date: 20051028
  Serious: Yes (Other)
  Sender: FDA-Public Use
  Company Number: 2004UW24186

PATIENT
  Age: 59 Year
  Sex: Female
  Weight: 50.802 kg

DRUGS (5)
  1. CRESTOR [Suspect]
     Indication: HYPERCHOLESTEROLAEMIA
     Dosage: 1/2 OF 10 MG TABLET
  2. CALCIUM GLUCONATE [Concomitant]
  3. ASPIRIN [Concomitant]
  4. CENTRUM [Concomitant]
  5. VIT C TAB [Concomitant]

REACTIONS (2)
  - HYPOAESTHESIA [None]
  - MEDICATION ERROR [None]
